FAERS Safety Report 18784884 (Version 2)
Quarter: 2021Q1

REPORT INFORMATION
  Report Type: Spontaneous
  Country: BR (occurrence: BR)
  Receive Date: 20210126
  Receipt Date: 20210209
  Transmission Date: 20210419
  Serious: Yes (Hospitalization, Other)
  Sender: FDA-Public Use
  Company Number: BR-009507513-2101BRA011097

PATIENT
  Age: 86 Year
  Sex: Female
  Weight: 59.45 kg

DRUGS (5)
  1. KEYTRUDA [Suspect]
     Active Substance: PEMBROLIZUMAB
     Dosage: CYCLE 2, 200MG, DILLUTION 200ML
     Dates: start: 20201015, end: 20201015
  2. KEYTRUDA [Suspect]
     Active Substance: PEMBROLIZUMAB
     Dosage: UNK
  3. SODIUM CHLORIDE. [Suspect]
     Active Substance: SODIUM CHLORIDE
     Dosage: 100ML SF 0.9%
  4. KEYTRUDA [Suspect]
     Active Substance: PEMBROLIZUMAB
     Indication: ADENOCARCINOMA
     Dosage: 200 MILLIGRAM, ONCE A MONTH
     Route: 042
     Dates: start: 20200925, end: 20201207
  5. AVALOX [Concomitant]
     Active Substance: MOXIFLOXACIN HYDROCHLORIDE
     Dosage: UNK

REACTIONS (11)
  - Dyspnoea [Recovered/Resolved]
  - Tachypnoea [Recovered/Resolved]
  - Tachycardia [Recovered/Resolved]
  - Hyponatraemia [Unknown]
  - Hyperaemia [Recovered/Resolved]
  - Dehydration [Unknown]
  - Delirium [Unknown]
  - Cyanosis [Recovered/Resolved]
  - Inappropriate schedule of product administration [Unknown]
  - Oxygen saturation abnormal [Recovered/Resolved]
  - Bronchospasm [Recovered/Resolved]

NARRATIVE: CASE EVENT DATE: 20200925
